FAERS Safety Report 18349612 (Version 3)
Quarter: 2020Q4

REPORT INFORMATION
  Report Type: Spontaneous
  Country: JP (occurrence: JP)
  Receive Date: 20201006
  Receipt Date: 20201023
  Transmission Date: 20210114
  Serious: Yes (Other)
  Sender: FDA-Public Use
  Company Number: JP-PFIZER INC-2020380557

PATIENT
  Age: 45 Year
  Sex: Male

DRUGS (10)
  1. CEFOZOPRAN [Suspect]
     Active Substance: CEFOZOPRAN
     Indication: CELLULITIS
  2. MEROPENEM. [Suspect]
     Active Substance: MEROPENEM
     Indication: PNEUMONIA PSEUDOMONAL
     Dosage: UNK
  3. CEFOZOPRAN [Suspect]
     Active Substance: CEFOZOPRAN
     Indication: FEBRILE NEUTROPENIA
     Dosage: UNK
  4. CYTOSINE ARABINOSIDE [Concomitant]
     Active Substance: CYTARABINE
     Indication: ACUTE MYELOID LEUKAEMIA
     Dosage: 100 MG/M2, 1X/DAY (INDUCTION THERAPY)
  5. CYTOSINE ARABINOSIDE [Concomitant]
     Active Substance: CYTARABINE
     Dosage: 2000 MG/M2, 2X/DAY (CONSOLIDATION THERAPY)
  6. MEROPENEM. [Suspect]
     Active Substance: MEROPENEM
     Indication: CELLULITIS
  7. AMIKACIN. [Concomitant]
     Active Substance: AMIKACIN
     Indication: PNEUMONIA PSEUDOMONAL
     Dosage: UNK
  8. LEVOFLOXACIN. [Suspect]
     Active Substance: LEVOFLOXACIN
     Indication: CELLULITIS
     Dosage: UNK
  9. IDARUBICIN HCL [Concomitant]
     Active Substance: IDARUBICIN HYDROCHLORIDE
     Indication: ACUTE MYELOID LEUKAEMIA
     Dosage: 12 MG/M2, CYCLIC (INDUCTION THERAPY)
  10. VANCOMYCIN [Suspect]
     Active Substance: VANCOMYCIN
     Indication: CELLULITIS
     Dosage: UNK

REACTIONS (1)
  - Stenotrophomonas infection [Recovering/Resolving]
